FAERS Safety Report 16804534 (Version 1)
Quarter: 2019Q3

REPORT INFORMATION
  Report Type: Spontaneous
  Country: US (occurrence: US)
  Receive Date: 20190723
  Receipt Date: 20190723
  Transmission Date: 20191005
  Serious: No
  Sender: FDA-Public Use
  Company Number: None

PATIENT
  Age: 45 Year
  Sex: Female
  Weight: 86 kg

DRUGS (1)
  1. SEMAGLUTIDE [Suspect]
     Active Substance: SEMAGLUTIDE
     Indication: DIABETES MELLITUS
     Route: 058
     Dates: start: 20190612, end: 20190619

REACTIONS (3)
  - Nausea [None]
  - Abdominal pain upper [None]
  - Vomiting [None]

NARRATIVE: CASE EVENT DATE: 20190619
